FAERS Safety Report 7873378-4 (Version None)
Quarter: 2011Q4

REPORT INFORMATION
  Report Type: 
  Country: None (occurrence: None)
  Receive Date: 20111030
  Receipt Date: 20110503
  Transmission Date: 20120403
  Serious: No
  Sender: FDA-Public Use
  Company Number: US-AMGEN-USASP2011023145

PATIENT
  Age: 49 Year
  Sex: Female
  Weight: 53.515 kg

DRUGS (6)
  1. FOSAMAX [Concomitant]
  2. FOLIC ACID [Concomitant]
     Dosage: 20 MG, UNK
     Route: 048
  3. LYRICA [Concomitant]
     Dosage: 150 MG, UNK
     Route: 048
  4. ENBREL [Suspect]
     Indication: PRODUCT USED FOR UNKNOWN INDICATION
     Dosage: 50 MG, QWK
     Route: 058
  5. METHOTREXATE [Concomitant]
     Dosage: 2.5 MG, UNK
     Route: 048
  6. SAVELLA [Concomitant]
     Dosage: 100 MG, UNK
     Route: 048

REACTIONS (1)
  - CONTUSION [None]
